FAERS Safety Report 24049763 (Version 1)
Quarter: 2024Q3

REPORT INFORMATION
  Report Type: Spontaneous
  Country: US (occurrence: US)
  Receive Date: 20240704
  Receipt Date: 20240704
  Transmission Date: 20241017
  Serious: Yes (Life-Threatening, Hospitalization, Other)
  Sender: RANBAXY
  Company Number: US-SUN PHARMACEUTICAL INDUSTRIES LTD-2024R1-454450

PATIENT
  Age: 31 Year
  Sex: Female

DRUGS (6)
  1. ERTAPENEM [Suspect]
     Active Substance: ERTAPENEM
     Indication: Burkholderia cepacia complex infection
     Route: 065
  2. ERTAPENEM [Suspect]
     Active Substance: ERTAPENEM
     Indication: Neisseria infection
  3. ERTAPENEM [Suspect]
     Active Substance: ERTAPENEM
     Indication: Alpha haemolytic streptococcal infection
  4. CEFIDEROCOL [Suspect]
     Active Substance: CEFIDEROCOL
     Indication: Burkholderia cepacia complex infection
     Route: 065
  5. CEFIDEROCOL [Suspect]
     Active Substance: CEFIDEROCOL
     Indication: Neisseria infection
  6. CEFIDEROCOL [Suspect]
     Active Substance: CEFIDEROCOL
     Indication: Alpha haemolytic streptococcal infection

REACTIONS (8)
  - Therapy non-responder [Unknown]
  - Tracheal inflammation [Unknown]
  - Metastases to lung [Unknown]
  - Excessive granulation tissue [Unknown]
  - Metaplasia [Unknown]
  - Burkholderia cepacia complex infection [Recovering/Resolving]
  - Mediastinitis [Recovering/Resolving]
  - Burkholderia infection [Recovering/Resolving]
